FAERS Safety Report 22273346 (Version 1)
Quarter: 2023Q2

REPORT INFORMATION
  Report Type: Spontaneous
  Country: US (occurrence: None)
  Receive Date: 20230501
  Receipt Date: 20230501
  Transmission Date: 20230722
  Serious: Yes (Hospitalization)
  Sender: FDA-Public Use
  Company Number: None

PATIENT
  Sex: Female

DRUGS (1)
  1. AUBAGIO [Suspect]
     Active Substance: TERIFLUNOMIDE
     Dosage: 14MG DAILY ORAL
     Route: 048

REACTIONS (7)
  - Oral infection [None]
  - Hand-foot-and-mouth disease [None]
  - Skin exfoliation [None]
  - Tremor [None]
  - Vision blurred [None]
  - Muscular weakness [None]
  - Unresponsive to stimuli [None]
